FAERS Safety Report 11322772 (Version 1)
Quarter: 2015Q3

REPORT INFORMATION
  Report Type: Spontaneous
  Country: FR (occurrence: FR)
  Receive Date: 20150730
  Receipt Date: 20150730
  Transmission Date: 20151125
  Serious: Yes (Hospitalization, Disabling)
  Sender: FDA-Public Use
  Company Number: FR-HOSPIRA-2883958

PATIENT
  Age: 26 Year
  Sex: Female

DRUGS (6)
  1. MIDAZOLAM [Suspect]
     Active Substance: MIDAZOLAM\MIDAZOLAM HYDROCHLORIDE
     Indication: ANXIOLYTIC THERAPY
     Dosage: 1 OR 2 VIALS OF 10 MG PER INJECTION, WHEN AT WORK (HOSPITAL), NOT DAILY
     Route: 042
  2. MIDAZOLAM [Suspect]
     Active Substance: MIDAZOLAM\MIDAZOLAM HYDROCHLORIDE
     Indication: ANXIOLYTIC THERAPY
     Dosage: 10 TO 25 MG (TWO TO FIVE VIALS), DAILY
     Route: 042
  3. MIDAZOLAM [Suspect]
     Active Substance: MIDAZOLAM\MIDAZOLAM HYDROCHLORIDE
     Indication: ANXIOLYTIC THERAPY
  4. SUBUTEX [Concomitant]
     Active Substance: BUPRENORPHINE HYDROCHLORIDE
     Indication: PRODUCT USED FOR UNKNOWN INDICATION
     Dosage: DAILY
     Route: 042
  5. ZOLPIDEM [Suspect]
     Active Substance: ZOLPIDEM\ZOLPIDEM TARTRATE
     Indication: PRODUCT USED FOR UNKNOWN INDICATION
     Dosage: 2 X 10 MG, SINGLE (DISSOLVED TABLETS IN 5 ML PHYSIOLOGICAL SERUM)
     Route: 013
  6. ZOLPIDEM [Suspect]
     Active Substance: ZOLPIDEM\ZOLPIDEM TARTRATE
     Indication: PRODUCT USED FOR UNKNOWN INDICATION
     Dosage: 10 MG, ONCE OR TWICE WEEKLY
     Route: 065

REACTIONS (13)
  - Necrosis [Unknown]
  - Cyanosis [Unknown]
  - Wrong technique in product usage process [Unknown]
  - Sensory loss [Unknown]
  - Intentional product misuse [Unknown]
  - Drug abuse [Unknown]
  - Drug dependence [Unknown]
  - Peripheral ischaemia [Unknown]
  - Product use issue [Unknown]
  - Pain in extremity [Unknown]
  - Intentional overdose [Unknown]
  - Compartment syndrome [Unknown]
  - Incorrect route of drug administration [Unknown]

NARRATIVE: CASE EVENT DATE: 2012
